FAERS Safety Report 26006269 (Version 1)
Quarter: 2025Q4

REPORT INFORMATION
  Report Type: Spontaneous
  Country: EU (occurrence: EU)
  Receive Date: 20251106
  Receipt Date: 20251106
  Transmission Date: 20260118
  Serious: Yes (Hospitalization)
  Sender: AUROBINDO
  Company Number: EU-002147023-NVSC2023DE121062

PATIENT
  Sex: Male

DRUGS (5)
  1. CELECOXIB [Suspect]
     Active Substance: CELECOXIB
     Indication: Product used for unknown indication
     Dosage: 400 MILLIGRAM (400 MG (VISIT DATE: 04 OCT 2022, 22 DEC 2022, 03 JUN 2022 ))
     Route: 065
     Dates: start: 20220515
  2. CELECOXIB [Suspect]
     Active Substance: CELECOXIB
     Dosage: 200 MILLIGRAM (200 MG (VISIT DATE: 04 JAN 2023))
     Route: 065
     Dates: start: 20220515
  3. CELECOXIB [Suspect]
     Active Substance: CELECOXIB
     Dosage: 100 MILLIGRAM
     Route: 065
     Dates: start: 20220715
  4. COSENTYX [Suspect]
     Active Substance: SECUKINUMAB
     Indication: Axial spondyloarthritis
     Dosage: 150 MILLIGRAM 150 MG (VISIT DATE: 14 JUL 2021)
     Route: 042
     Dates: start: 20210707, end: 20221231
  5. COSENTYX [Suspect]
     Active Substance: SECUKINUMAB
     Dosage: 150 MILLIGRAM
     Route: 042
     Dates: start: 20220430, end: 20220827

REACTIONS (2)
  - Arthritis [Unknown]
  - Depressed mood [Unknown]
